FAERS Safety Report 16083117 (Version 1)
Quarter: 2019Q1

REPORT INFORMATION
  Report Type: Spontaneous
  Country: GB (occurrence: GB)
  Receive Date: 20190318
  Receipt Date: 20190318
  Transmission Date: 20190418
  Serious: Yes (Life-Threatening)
  Sender: FDA-Public Use
  Company Number: GB-ACCORD-113056

PATIENT
  Age: 78 Year
  Sex: Female
  Weight: 68 kg

DRUGS (11)
  1. SOLARAZE [Concomitant]
     Active Substance: DICLOFENAC SODIUM
     Dosage: APPLY FOR A MAXIMUM OF 60 DAYS
     Dates: start: 20180906
  2. CLOTRIMAZOLE. [Concomitant]
     Active Substance: CLOTRIMAZOLE
     Dosage: USE AS DIRECTED 2-3 TIMES DAILY
     Dates: start: 20181001, end: 20181002
  3. RANITIDINE. [Concomitant]
     Active Substance: RANITIDINE
     Dosage: LONG TERM IF TAKING ASPIRIN
     Dates: start: 20180531
  4. LAXIDO [Concomitant]
     Active Substance: POLYETHYLENE GLYCOL 3350\POTASSIUM CHLORIDE\SODIUM BICARBONATE\SODIUM CHLORIDE
     Dosage: 1-2 EVERY DAY IN WATER
     Dates: start: 20181029
  5. ASPIRIN. [Concomitant]
     Active Substance: ASPIRIN
     Dates: start: 20180531, end: 20181029
  6. CO-AMOXICLAV [Concomitant]
     Active Substance: AMOXICILLIN\CLAVULANATE POTASSIUM
     Dosage: FOR 3-5 DAYS
     Dates: start: 20180531
  7. COCODAMOL [Concomitant]
     Active Substance: ACETAMINOPHEN\CODEINE PHOSPHATE
     Dosage: TAKE 1 OR 2 FOUR TIMES DAILY
     Dates: start: 20181029
  8. ACCRETE D3 [Concomitant]
     Active Substance: CALCIUM CARBONATE\CHOLECALCIFEROL
     Dates: start: 20180531
  9. FLUDROCORTISONE [Concomitant]
     Active Substance: FLUDROCORTISONE
     Dosage: USING A PILL CUTTER
     Dates: start: 20181029
  10. ATORVASTATIN [Concomitant]
     Active Substance: ATORVASTATIN
     Dates: start: 20180531
  11. DONEPEZIL/DONEPEZIL HYDROCHLORIDE [Suspect]
     Active Substance: DONEPEZIL HYDROCHLORIDE
     Indication: PRODUCT USED FOR UNKNOWN INDICATION
     Dosage: AT BEDTIME
     Dates: start: 20180531, end: 20181029

REACTIONS (1)
  - Loss of consciousness [Recovering/Resolving]

NARRATIVE: CASE EVENT DATE: 20181029
